FAERS Safety Report 6301379-6 (Version None)
Quarter: 2009Q3

REPORT INFORMATION
  Report Type: 
  Country: None (occurrence: None)
  Receive Date: 20090807
  Receipt Date: 20090806
  Transmission Date: 20100115
  Serious: Yes (Death, Other)
  Sender: FDA-Public Use
  Company Number: ES-ROXANE LABORATORIES, INC.-2009-DE-04863GD

PATIENT
  Age: 63 Year
  Sex: Male
  Weight: 65 kg

DRUGS (3)
  1. NAPROXEN [Suspect]
     Indication: PNEUMONIA MYCOPLASMAL
     Dosage: 1500 MG
     Dates: start: 20070608, end: 20070610
  2. LEVOFLOXACIN [Suspect]
     Indication: PNEUMONIA MYCOPLASMAL
     Dosage: 1000 MG
     Dates: start: 20070602, end: 20070605
  3. DOXYCYCLINE [Suspect]
     Indication: PNEUMONIA MYCOPLASMAL
     Dosage: 200 MG
     Dates: start: 20070606, end: 20070611

REACTIONS (12)
  - ACUTE HEPATIC FAILURE [None]
  - ASTHENIA [None]
  - CHOLESTASIS [None]
  - CHROMATURIA [None]
  - COAGULOPATHY [None]
  - DECREASED APPETITE [None]
  - HEPATIC ENCEPHALOPATHY [None]
  - HEPATIC NECROSIS [None]
  - HYPERBILIRUBINAEMIA [None]
  - JAUNDICE [None]
  - RENAL FAILURE [None]
  - WEIGHT DECREASED [None]
